FAERS Safety Report 24128817 (Version 2)
Quarter: 2024Q3

REPORT INFORMATION
  Report Type: Spontaneous
  Country: FR (occurrence: FR)
  Receive Date: 20240723
  Receipt Date: 20240807
  Transmission Date: 20241017
  Serious: Yes (Hospitalization)
  Sender: MYLAN
  Company Number: FR-ROCHE-3578100

PATIENT
  Age: 60 Year
  Sex: Male

DRUGS (3)
  1. PACLITAXEL [Suspect]
     Active Substance: PACLITAXEL
     Indication: Lung neoplasm malignant
     Dosage: 200 MILLIGRAM/SQ. METER, Q3W
     Route: 042
     Dates: start: 20240527, end: 20240617
  2. BEVACIZUMAB [Suspect]
     Active Substance: BEVACIZUMAB
     Indication: Lung neoplasm malignant
     Dosage: 15 MILLIGRAM/KILOGRAM, Q3W
     Route: 042
     Dates: start: 20240527, end: 20240617
  3. PIPERACILLIN SODIUM\TAZOBACTAM SODIUM [Concomitant]
     Active Substance: PIPERACILLIN SODIUM\TAZOBACTAM SODIUM
     Dosage: 16 GRAM, QD (24 HOURS)
     Route: 065
     Dates: start: 20240629

REACTIONS (5)
  - Hyperthermia [Recovered/Resolved]
  - General physical health deterioration [Not Recovered/Not Resolved]
  - Bronchitis [Recovered/Resolved]
  - Device related infection [Recovered/Resolved with Sequelae]
  - Pneumonia [Recovered/Resolved]

NARRATIVE: CASE EVENT DATE: 20240603
